FAERS Safety Report 6210753-8 (Version None)
Quarter: 2009Q2

REPORT INFORMATION
  Report Type: 
  Country: None (occurrence: None)
  Receive Date: 20090601
  Receipt Date: 20090522
  Transmission Date: 20091009
  Serious: Yes (Other)
  Sender: FDA-Public Use
  Company Number: GB-ABBOTT-09P-167-0575248-00

PATIENT
  Age: 15 Year
  Sex: Male

DRUGS (1)
  1. EPILIM CHRONO TABLETS [Suspect]
     Indication: GRAND MAL CONVULSION
     Route: 048
     Dates: start: 20070202, end: 20081217

REACTIONS (3)
  - MYELODYSPLASTIC SYNDROME [None]
  - THROMBOCYTOPENIA [None]
  - WEIGHT DECREASED [None]
